FAERS Safety Report 25660715 (Version 2)
Quarter: 2025Q4

REPORT INFORMATION
  Report Type: Spontaneous
  Country: US (occurrence: US)
  Receive Date: 20250808
  Receipt Date: 20251120
  Transmission Date: 20260118
  Serious: Yes (Hospitalization, Disabling, Other)
  Sender: JOHNSON AND JOHNSON
  Company Number: US-JNJFOC-20250734819

PATIENT
  Age: 74 Year
  Sex: Male

DRUGS (1)
  1. CARVYKTI [Suspect]
     Active Substance: CILTACABTAGENE AUTOLEUCEL
     Indication: Plasma cell myeloma
     Dates: start: 202410, end: 202410

REACTIONS (5)
  - Immune-mediated enterocolitis [Unknown]
  - Blood electrolytes decreased [Unknown]
  - Malabsorption [Unknown]
  - Parkinsonism [Recovering/Resolving]
  - Pyrexia [Unknown]

NARRATIVE: CASE EVENT DATE: 20241001
